FAERS Safety Report 21460345 (Version 2)
Quarter: 2022Q4

REPORT INFORMATION
  Report Type: Spontaneous
  Country: US (occurrence: US)
  Receive Date: 20221014
  Receipt Date: 20221021
  Transmission Date: 20230112
  Serious: Yes (Hospitalization)
  Sender: FDA-Public Use
  Company Number: US-BAUSCH-BL-2022-023468

PATIENT
  Age: 21 Year
  Sex: Male

DRUGS (15)
  1. BUPROPION [Interacting]
     Active Substance: BUPROPION
     Indication: Attention deficit hyperactivity disorder
     Route: 065
  2. BUPROPION [Interacting]
     Active Substance: BUPROPION
     Indication: Major depression
     Route: 065
  3. BUPROPION [Interacting]
     Active Substance: BUPROPION
     Route: 065
  4. ATOMOXETINE [Interacting]
     Active Substance: ATOMOXETINE
     Indication: Attention deficit hyperactivity disorder
     Route: 065
  5. ATOMOXETINE [Interacting]
     Active Substance: ATOMOXETINE
     Indication: Major depression
     Route: 065
  6. ATOMOXETINE [Interacting]
     Active Substance: ATOMOXETINE
     Route: 065
  7. QUETIAPINE [Interacting]
     Active Substance: QUETIAPINE
     Indication: Insomnia
     Dosage: NIGHTLY
     Route: 065
  8. QUETIAPINE [Interacting]
     Active Substance: QUETIAPINE
     Dosage: REINITIATED, TITRATED UP TO 400 MG AT BEDTIME
     Route: 065
  9. QUETIAPINE [Interacting]
     Active Substance: QUETIAPINE
     Dosage: NIGHTLY,
     Route: 065
  10. DIMETHYLTRYPTAMINE [Concomitant]
     Active Substance: DIMETHYLTRYPTAMINE
     Indication: Product used for unknown indication
  11. ALPRAZOLAM [Concomitant]
     Active Substance: ALPRAZOLAM
     Indication: Anxiety
     Dosage: AS NEEDED
  12. LORAZEPAM [Concomitant]
     Active Substance: LORAZEPAM
     Indication: Agitation
     Dosage: EVERY 8 HOURS AS NEEDED
  13. LORAZEPAM [Concomitant]
     Active Substance: LORAZEPAM
     Dosage: TAPERED DOWN
  14. DIVALPROEX SODIUM [Concomitant]
     Active Substance: DIVALPROEX SODIUM
     Indication: Product used for unknown indication
  15. DIVALPROEX SODIUM [Concomitant]
     Active Substance: DIVALPROEX SODIUM
     Dosage: TITRATED UP TO 1500 MG TOTAL DAILY DOSE

REACTIONS (9)
  - Manic symptom [Recovered/Resolved]
  - Psychotic disorder [Recovered/Resolved]
  - Seizure [Recovered/Resolved]
  - Psychomotor hyperactivity [Recovered/Resolved]
  - Restlessness [Unknown]
  - Anxiety [Unknown]
  - Insomnia [Unknown]
  - Drug interaction [Unknown]
  - Off label use [Unknown]
